FAERS Safety Report 23774280 (Version 1)
Quarter: 2024Q2

REPORT INFORMATION
  Report Type: Spontaneous
  Country: FR (occurrence: FR)
  Receive Date: 20240423
  Receipt Date: 20240423
  Transmission Date: 20240716
  Serious: Yes (Hospitalization)
  Sender: FDA-Public Use
  Company Number: None

PATIENT
  Age: 74 Year
  Sex: Male

DRUGS (2)
  1. LEVOFLOXACIN [Suspect]
     Active Substance: LEVOFLOXACIN
     Indication: Osteitis
     Route: 048
     Dates: start: 20240208, end: 20240306
  2. LINEZOLID [Suspect]
     Active Substance: LINEZOLID
     Indication: Osteitis
     Route: 048
     Dates: start: 20240208, end: 20240306

REACTIONS (2)
  - Lactic acidosis [Recovering/Resolving]
  - Pancytopenia [Recovering/Resolving]

NARRATIVE: CASE EVENT DATE: 20240307
